FAERS Safety Report 6159607-6 (Version None)
Quarter: 2009Q2

REPORT INFORMATION
  Report Type: 
  Country: None (occurrence: None)
  Receive Date: 20090420
  Receipt Date: 20090409
  Transmission Date: 20091009
  Serious: Yes (Other)
  Sender: FDA-Public Use
  Company Number: GB-JNJFOC-20090402757

PATIENT
  Age: 54 Year
  Sex: Male
  Weight: 80 kg

DRUGS (11)
  1. REMICADE [Suspect]
     Indication: RHEUMATOID ARTHRITIS
     Route: 042
  2. METHOTREXATE [Concomitant]
  3. ASPIRIN [Concomitant]
  4. ATENOLOL [Concomitant]
  5. CODEINE [Concomitant]
  6. FOLIC ACID [Concomitant]
  7. ISOSORBIDE [Concomitant]
  8. MELOXICAM [Concomitant]
  9. PERINDOPRIL [Concomitant]
  10. SIMVASTATIN [Concomitant]
  11. TRAMADOL HCL [Concomitant]

REACTIONS (1)
  - BLADDER CANCER [None]
